FAERS Safety Report 8774878 (Version 6)
Quarter: 2013Q4

REPORT INFORMATION
  Report Type: Report from Study
  Country: BR (occurrence: BR)
  Receive Date: 20120910
  Receipt Date: 20131122
  Transmission Date: 20140711
  Serious: Yes (Hospitalization, Other)
  Sender: FDA-Public Use
  Company Number: BR-ROCHE-1108846

PATIENT
  Age: 61 Year
  Sex: Female
  Weight: 88 kg

DRUGS (23)
  1. MABTHERA [Suspect]
     Indication: RHEUMATOID ARTHRITIS
     Dosage: LAST INFUSION IN DEC/2012
     Route: 042
     Dates: start: 200905
  2. MABTHERA [Suspect]
     Dosage: 1000 MG/ML
     Route: 050
     Dates: start: 20080530, end: 20100610
  3. DECADRON [Suspect]
     Indication: PRODUCT USED FOR UNKNOWN INDICATION
     Route: 065
  4. METICORTEN [Concomitant]
     Route: 065
  5. CLONAZEPAM [Concomitant]
     Route: 065
  6. LIMBITROL [Concomitant]
     Route: 065
  7. OMEPRAZOLE [Concomitant]
     Route: 065
  8. SIMVASTATIN [Concomitant]
     Route: 065
  9. ATENOLOL [Concomitant]
     Route: 065
  10. ALENDRONATE [Concomitant]
  11. PREDNISONE [Concomitant]
     Route: 065
  12. METHOTREXATE [Concomitant]
     Route: 065
  13. FOLIC ACID [Concomitant]
     Route: 065
  14. ATENOLOL [Concomitant]
     Route: 065
  15. OMEPRAZOLE [Concomitant]
     Route: 065
  16. MELOXICAM [Concomitant]
     Route: 065
  17. CYCLOBENZAPRINE [Concomitant]
     Route: 065
  18. ACETAMINOPHEN [Concomitant]
     Route: 065
  19. FAMOTIDINE [Concomitant]
     Route: 065
  20. METICORTEN [Concomitant]
     Route: 065
  21. PANTOPRAZOLE [Concomitant]
  22. FLUOXETIN [Concomitant]
  23. BROMAZEPAM [Concomitant]
     Route: 065

REACTIONS (24)
  - Heart rate decreased [Unknown]
  - Cardiac disorder [Recovered/Resolved]
  - Syncope [Recovered/Resolved]
  - Cataract [Not Recovered/Not Resolved]
  - Dyspnoea [Recovered/Resolved]
  - Cyst [Not Recovered/Not Resolved]
  - Medical device complication [Not Recovered/Not Resolved]
  - Procedural hypertension [Unknown]
  - Arthralgia [Unknown]
  - Joint effusion [Recovered/Resolved]
  - Hair disorder [Recovered/Resolved]
  - Gait disturbance [Unknown]
  - Blood cholesterol increased [Not Recovered/Not Resolved]
  - Arthralgia [Unknown]
  - Feeling cold [Recovered/Resolved]
  - Skin disorder [Unknown]
  - Hypertension [Recovering/Resolving]
  - Post procedural inflammation [Recovered/Resolved]
  - Glucose tolerance impaired [Unknown]
  - Local swelling [Unknown]
  - Local swelling [Recovered/Resolved]
  - Chest pain [Unknown]
  - Malaise [Unknown]
  - Dizziness [Unknown]
